FAERS Safety Report 6439249-5 (Version None)
Quarter: 2009Q4

REPORT INFORMATION
  Report Type: 
  Country: None (occurrence: None)
  Receive Date: 20091110
  Receipt Date: 20091026
  Transmission Date: 20100525
  Serious: Yes (Death, Hospitalization)
  Sender: FDA-Public Use
  Company Number: 2009AC000245

PATIENT
  Age: 69 Year
  Sex: Female

DRUGS (22)
  1. DIGOXIN [Suspect]
     Indication: TACHYCARDIA
     Dosage: 0.25 MG;QD;PO
     Route: 048
     Dates: start: 20071001
  2. AMLODIPINE [Concomitant]
  3. POTASSIUM CHLORIDE [Concomitant]
  4. LIPITOR [Concomitant]
  5. FUROSEMIDE [Concomitant]
  6. TYLENOL (CAPLET) [Concomitant]
  7. SEPTRA [Concomitant]
  8. LASIX [Concomitant]
  9. LOTREL [Concomitant]
  10. LISINOPRIL [Concomitant]
  11. AMBIEN [Concomitant]
  12. TRIAMTERENE [Concomitant]
  13. NICOTINE [Concomitant]
  14. COMBIVENT [Concomitant]
  15. ZYVOX [Concomitant]
  16. AMPICILLIN [Concomitant]
  17. LOVENOX [Concomitant]
  18. VITAMIN B COMPLEX CAP [Concomitant]
  19. LACTINEX [Concomitant]
  20. LOPERAMIDE [Concomitant]
  21. CALMOSEPTINE [Concomitant]
  22. INSULIN [Concomitant]

REACTIONS (46)
  - AORTIC ANEURYSM [None]
  - ARRHYTHMIA [None]
  - ATRIAL FIBRILLATION [None]
  - BRADYCARDIA [None]
  - CARDIAC ARREST [None]
  - CHRONIC OBSTRUCTIVE PULMONARY DISEASE [None]
  - CLOSTRIDIAL INFECTION [None]
  - CONVULSION [None]
  - CORONARY ARTERY DISEASE [None]
  - CORONARY ARTERY STENOSIS [None]
  - DECUBITUS ULCER [None]
  - DEPRESSION [None]
  - DIABETES MELLITUS [None]
  - DUODENAL ULCER [None]
  - DUODENITIS [None]
  - ECONOMIC PROBLEM [None]
  - ELECTROMECHANICAL DISSOCIATION [None]
  - ENCEPHALOPATHY [None]
  - GASTRITIS EROSIVE [None]
  - GASTROINTESTINAL HAEMORRHAGE [None]
  - HAEMATOCRIT DECREASED [None]
  - HAEMODIALYSIS [None]
  - HAEMOGLOBIN DECREASED [None]
  - HYPERKALAEMIA [None]
  - HYPERTENSION [None]
  - HYPOTENSION [None]
  - INFLAMMATION [None]
  - ISCHAEMIA [None]
  - MULTIPLE INJURIES [None]
  - MYOCARDIAL ISCHAEMIA [None]
  - OESOPHAGEAL DISORDER [None]
  - OLIGURIA [None]
  - PAIN [None]
  - PERIPHERAL VASCULAR DISORDER [None]
  - PULMONARY EMBOLISM [None]
  - RECTAL HAEMORRHAGE [None]
  - RENAL FAILURE ACUTE [None]
  - RESPIRATORY FAILURE [None]
  - SEPTIC SHOCK [None]
  - SINUS TACHYCARDIA [None]
  - SKIN ULCER [None]
  - THERAPEUTIC AGENT TOXICITY [None]
  - TORSADE DE POINTES [None]
  - UPPER GASTROINTESTINAL HAEMORRHAGE [None]
  - URINARY TRACT INFECTION [None]
  - VENTRICULAR TACHYCARDIA [None]
